FAERS Safety Report 22275497 (Version 2)
Quarter: 2023Q2

REPORT INFORMATION
  Report Type: Spontaneous
  Country: US (occurrence: US)
  Receive Date: 20230502
  Receipt Date: 20230504
  Transmission Date: 20230722
  Serious: No
  Sender: FDA-Public Use
  Company Number: US-PFIZER INC-PV202300075502

PATIENT
  Age: 67 Year
  Sex: Female

DRUGS (2)
  1. BRAFTOVI [Suspect]
     Active Substance: ENCORAFENIB
     Indication: Metastatic neoplasm
     Dosage: 300 MG, DAILY
  2. ERBITUX [Suspect]
     Active Substance: CETUXIMAB
     Dosage: UNK

REACTIONS (3)
  - Intentional product use issue [Unknown]
  - Pain [Unknown]
  - Myalgia [Unknown]
